FAERS Safety Report 7630794-3 (Version None)
Quarter: 2011Q3

REPORT INFORMATION
  Report Type: 
  Country: None (occurrence: None)
  Receive Date: 20110722
  Receipt Date: 20110715
  Transmission Date: 20111222
  Serious: Yes (Hospitalization)
  Sender: FDA-Public Use
  Company Number: AT-AMGEN-AUTCT2011033815

PATIENT
  Age: 66 Year
  Sex: Female

DRUGS (17)
  1. DENOSUMAB [Suspect]
     Indication: BREAST CANCER
     Dates: start: 20071127, end: 20110517
  2. EUTHYROX [Concomitant]
     Dosage: 75 A?G, UNK
  3. CILAZAPRIL/HYDROCHLOROTHIAZIDE [Concomitant]
  4. CAL D VITA [Concomitant]
  5. PAROXETINE HCL [Concomitant]
     Dosage: 20 MG, UNK
  6. FUROHEXAL [Concomitant]
     Dosage: 40 MG, UNK
  7. METOPROLOL TARTRATE [Concomitant]
     Dosage: 95 MG, BID
  8. NEXIUM [Concomitant]
     Dosage: 40 MG, UNK
  9. AMLODIPINE [Concomitant]
  10. PASSEDAN-NERVENTROPFEN [Concomitant]
  11. LYRICA [Concomitant]
     Dosage: 150 MG, BID
  12. HYDAL [Concomitant]
     Dosage: 2.6 MG, UNK
  13. PANTOPRAZOLE SODIUM [Concomitant]
     Dosage: UNK
  14. MAGNOSOLV [Concomitant]
  15. ARIMIDEX [Concomitant]
     Dosage: UNK
     Dates: start: 20091123
  16. SINTROM [Concomitant]
     Dosage: 4 MG, UNK
  17. FENTANYL [Concomitant]
     Dosage: UNK

REACTIONS (2)
  - PAIN [None]
  - POLYNEUROPATHY [None]
